FAERS Safety Report 22273436 (Version 1)
Quarter: 2023Q2

REPORT INFORMATION
  Report Type: Spontaneous
  Country: BR (occurrence: BR)
  Receive Date: 20230502
  Receipt Date: 20230502
  Transmission Date: 20230721
  Serious: Yes (Other)
  Sender: FDA-Public Use
  Company Number: BR-GLAXOSMITHKLINE-BR2023AMR062190

PATIENT

DRUGS (1)
  1. FLUTICASONE PROPIONATE [Suspect]
     Active Substance: FLUTICASONE PROPIONATE
     Indication: Product used for unknown indication
     Dosage: UNK SPRAY - 60 DOSES - 250 MCG

REACTIONS (2)
  - Asthmatic crisis [Unknown]
  - Intercepted product selection error [Unknown]

NARRATIVE: CASE EVENT DATE: 20230421
